FAERS Safety Report 12285078 (Version 4)
Quarter: 2016Q3

REPORT INFORMATION
  Report Type: Spontaneous
  Country: FR (occurrence: FR)
  Receive Date: 20160420
  Receipt Date: 20160801
  Transmission Date: 20161109
  Serious: Yes (Hospitalization)
  Sender: FDA-Public Use
  Company Number: FR-009507513-1604FRA010976

PATIENT
  Age: 56 Year
  Sex: Female

DRUGS (9)
  1. IMIPENEM AND CILASTATIN [Suspect]
     Active Substance: CILASTATIN SODIUM\IMIPENEM
     Dosage: 1 DF, PER CYCLE
     Route: 042
     Dates: start: 20160113, end: 20160121
  2. IMIPENEM AND CILASTATIN [Suspect]
     Active Substance: CILASTATIN SODIUM\IMIPENEM
     Dosage: 1 DF, PER CYCLE
     Route: 042
     Dates: start: 20160108, end: 20160205
  3. IMIPENEM AND CILASTATIN [Suspect]
     Active Substance: CILASTATIN SODIUM\IMIPENEM
     Dosage: 1 DF, PER CYCLE
     Route: 042
     Dates: start: 20160209, end: 20160217
  4. CANCIDAS [Suspect]
     Active Substance: CASPOFUNGIN ACETATE
     Dosage: UNK, CYCLICAL
     Dates: start: 20160120, end: 20160219
  5. CANCIDAS [Suspect]
     Active Substance: CASPOFUNGIN ACETATE
     Dosage: UNK, CYCLICAL
     Dates: start: 20151230, end: 20160106
  6. IMIPENEM AND CILASTATIN [Suspect]
     Active Substance: CILASTATIN SODIUM\IMIPENEM
     Dosage: 1 DF, PER CYCLE
     Route: 042
     Dates: start: 20151225, end: 20160103
  7. ZYVOXID [Suspect]
     Active Substance: LINEZOLID
     Dosage: UNK
     Route: 042
     Dates: start: 20160129, end: 20160208
  8. ZYVOXID [Suspect]
     Active Substance: LINEZOLID
     Dosage: UNK
     Route: 042
     Dates: start: 20160120, end: 20160126
  9. ZYVOXID [Suspect]
     Active Substance: LINEZOLID
     Dosage: UNK
     Route: 042
     Dates: start: 20160215, end: 20160218

REACTIONS (3)
  - Toxic skin eruption [Not Recovered/Not Resolved]
  - Monocytosis [Recovering/Resolving]
  - Eosinophilia [Recovering/Resolving]

NARRATIVE: CASE EVENT DATE: 201601
